FAERS Safety Report 6421791-4 (Version None)
Quarter: 2009Q4

REPORT INFORMATION
  Report Type: 
  Country: None (occurrence: None)
  Receive Date: 20091030
  Receipt Date: 20091022
  Transmission Date: 20100525
  Serious: Yes (Hospitalization)
  Sender: FDA-Public Use
  Company Number: A0813681A

PATIENT
  Age: 68 Year
  Sex: Female
  Weight: 53.6 kg

DRUGS (1)
  1. PAZOPANIB [Suspect]
     Indication: NEOPLASM

REACTIONS (2)
  - DYSPNOEA [None]
  - LEFT VENTRICULAR DYSFUNCTION [None]
